FAERS Safety Report 22349052 (Version 4)
Quarter: 2024Q1

REPORT INFORMATION
  Report Type: Spontaneous
  Country: US (occurrence: US)
  Receive Date: 20230522
  Receipt Date: 20240104
  Transmission Date: 20240410
  Serious: No
  Sender: FDA-Public Use
  Company Number: US-Ipsen Biopharmaceuticals, Inc.-2023-11318

PATIENT
  Age: 11 Month
  Sex: Female

DRUGS (4)
  1. SOMATULINE DEPOT [Suspect]
     Active Substance: LANREOTIDE ACETATE
     Indication: Hypoglycaemia
     Dosage: 60MG/0.2ML, INJECT ONE SYRINGE UNDER THE SKIN (SUBCUTANEOUS INJECTION) ONCE EVERY 28 DAYS
     Route: 058
     Dates: start: 20230314
  2. SOMATULINE DEPOT [Suspect]
     Active Substance: LANREOTIDE ACETATE
     Indication: Off label use
  3. ALBUTEROL [Concomitant]
     Active Substance: ALBUTEROL
     Dosage: NEBULIZER
  4. DEXTROSE [Concomitant]
     Active Substance: DEXTROSE\DEXTROSE MONOHYDRATE
     Dosage: INJECTION 20 %

REACTIONS (4)
  - Constipation [Unknown]
  - Fatigue [Unknown]
  - Off label use [Unknown]
  - Product use issue [Unknown]

NARRATIVE: CASE EVENT DATE: 20230314
